FAERS Safety Report 5257533-8 (Version None)
Quarter: 2007Q1

REPORT INFORMATION
  Report Type: 
  Country: None (occurrence: None)
  Receive Date: 20070307
  Receipt Date: 20060907
  Transmission Date: 20070707
  Serious: No
  Sender: FDA-Public Use
  Company Number: US-GLAXOSMITHKLINE-A0619401A

PATIENT
  Age: 59 Year
  Sex: Female

DRUGS (6)
  1. REQUIP [Suspect]
     Dosage: .125MG PER DAY
     Route: 048
     Dates: start: 20060905
  2. LITHIUM CARBONATE [Concomitant]
  3. TOPROL-XL [Concomitant]
  4. SEROQUEL [Concomitant]
  5. KLONOPIN [Concomitant]
  6. SONATA [Concomitant]

REACTIONS (2)
  - DIZZINESS [None]
  - FATIGUE [None]
